FAERS Safety Report 21999023 (Version 1)
Quarter: 2023Q1

REPORT INFORMATION
  Report Type: Spontaneous
  Country: US (occurrence: None)
  Receive Date: 20230216
  Receipt Date: 20230216
  Transmission Date: 20230418
  Serious: No
  Sender: FDA-Public Use
  Company Number: 2023A027908

PATIENT
  Age: 25801 Day
  Sex: Male

DRUGS (1)
  1. BYDUREON BCISE [Suspect]
     Active Substance: EXENATIDE
     Indication: Type 2 diabetes mellitus
     Route: 058

REACTIONS (4)
  - Injection site haemorrhage [Recovered/Resolved]
  - Needle issue [Unknown]
  - Device use issue [Unknown]
  - Drug dose omission by device [Not Recovered/Not Resolved]

NARRATIVE: CASE EVENT DATE: 20230130
